FAERS Safety Report 4947239-4 (Version None)
Quarter: 2006Q1

REPORT INFORMATION
  Report Type: 
  Country: None (occurrence: None)
  Receive Date: 20060201
  Receipt Date: 20051218
  Transmission Date: 20060701
  Serious: No
  Sender: FDA-Public Use
  Company Number: 2005PV006015

PATIENT
  Age: 71 Year
  Sex: Male
  Weight: 108.8633 kg

DRUGS (5)
  1. BYETTA [Suspect]
     Indication: DIABETES MELLITUS NON-INSULIN-DEPENDENT
     Dosage: 5 MCG, BID; SC, 5 MCG, BID; SC
     Route: 058
     Dates: start: 20051204, end: 20051201
  2. BYETTA [Suspect]
     Indication: DIABETES MELLITUS NON-INSULIN-DEPENDENT
     Dosage: 5 MCG, BID; SC, 5 MCG, BID; SC
     Route: 058
     Dates: start: 20051201
  3. NPH INSULIN [Concomitant]
  4. INSULIN [Concomitant]
  5. ULTRAM [Concomitant]

REACTIONS (1)
  - ARTHRITIS [None]
